FAERS Safety Report 15222840 (Version 8)
Quarter: 2024Q3

REPORT INFORMATION
  Report Type: Spontaneous
  Country: PT (occurrence: PT)
  Receive Date: 20180731
  Receipt Date: 20240709
  Transmission Date: 20241016
  Serious: Yes (Life-Threatening, Hospitalization, Other)
  Sender: JOHNSON AND JOHNSON
  Company Number: None

PATIENT
  Age: 48 Year
  Sex: Female
  Weight: 77 kg

DRUGS (14)
  1. TOPIRAMATE [Suspect]
     Active Substance: TOPIRAMATE
     Indication: Weight decreased
     Route: 048
     Dates: start: 201708, end: 201804
  2. CHROMIUM PICOLINATE [Interacting]
     Active Substance: CHROMIUM PICOLINATE
     Indication: Weight decreased
     Route: 048
     Dates: start: 201708, end: 201804
  3. FUROSEMIDE [Interacting]
     Active Substance: FUROSEMIDE
     Indication: Weight decreased
     Route: 048
     Dates: start: 201708, end: 201804
  4. CHLORDIAZEPOXIDE [Interacting]
     Active Substance: CHLORDIAZEPOXIDE
     Indication: Weight decreased
     Route: 048
     Dates: start: 201708, end: 201804
  5. CHLORDIAZEPOXIDE [Interacting]
     Active Substance: CHLORDIAZEPOXIDE
     Route: 048
     Dates: start: 201708, end: 201804
  6. ORLISTAT [Interacting]
     Active Substance: ORLISTAT
     Indication: Weight decreased
     Route: 048
     Dates: start: 201708, end: 201804
  7. METFORMIN [Interacting]
     Active Substance: METFORMIN HYDROCHLORIDE
     Indication: Weight decreased
     Route: 048
     Dates: start: 201708, end: 201804
  8. ETHINYL ESTRADIOL\GESTODENE [Interacting]
     Active Substance: ETHINYL ESTRADIOL\GESTODENE
     Indication: Contraception
     Dosage: 1 UG/L
     Route: 048
     Dates: start: 201711, end: 201804
  9. CENTELLA ASIATICA WHOLE [Interacting]
     Active Substance: CENTELLA ASIATICA WHOLE
     Indication: Weight decreased
     Route: 048
     Dates: start: 201708, end: 201804
  10. BUPROPION [Interacting]
     Active Substance: BUPROPION
     Indication: Weight decreased
     Route: 048
     Dates: start: 201708, end: 201804
  11. PHENOLPHTHALEIN [Interacting]
     Active Substance: PHENOLPHTHALEIN
     Indication: Weight decreased
     Route: 048
     Dates: start: 201708, end: 201804
  12. CASCARA SAGRADA [Suspect]
     Active Substance: FRANGULA PURSHIANA BARK
     Indication: Weight decreased
     Route: 048
     Dates: start: 201708, end: 201804
  13. SENNOSIDES A AND B [Suspect]
     Active Substance: SENNOSIDES A AND B
     Indication: Weight control
     Route: 065
  14. SENNA LEAF [Suspect]
     Active Substance: SENNA LEAF
     Indication: Product used for unknown indication
     Route: 065

REACTIONS (10)
  - Cerebral venous thrombosis [Recovered/Resolved]
  - Thalamic infarction [Not Recovered/Not Resolved]
  - Psychomotor retardation [Recovering/Resolving]
  - Fatigue [Recovering/Resolving]
  - Bradyphrenia [Recovering/Resolving]
  - Slow response to stimuli [Recovering/Resolving]
  - Drug interaction [Unknown]
  - Intentional product misuse [Unknown]
  - Product use in unapproved indication [Unknown]
  - Off label use [Unknown]

NARRATIVE: CASE EVENT DATE: 20170801
